FAERS Safety Report 8797115 (Version 1)
Quarter: 2012Q4

REPORT INFORMATION
  Report Type: Report from Study
  Country: DK (occurrence: DK)
  Receive Date: 20120919
  Receipt Date: 20120919
  Transmission Date: 20130627
  Serious: Yes (Death)
  Sender: FDA-Public Use
  Company Number: DK-GLAXOSMITHKLINE-B0831571A

PATIENT
  Age: 42 Year

DRUGS (3)
  1. TOPOTECAN [Suspect]
     Indication: SMALL CELL LUNG CANCER STAGE UNSPECIFIED
     Route: 042
     Dates: start: 20120814, end: 20120906
  2. CISPLATIN [Suspect]
     Indication: SMALL CELL LUNG CANCER STAGE UNSPECIFIED
     Route: 042
     Dates: start: 20120814, end: 20120906
  3. INNOHEP [Concomitant]
     Route: 065

REACTIONS (1)
  - Death [Fatal]
